FAERS Safety Report 20949285 (Version 1)
Quarter: 2022Q2

REPORT INFORMATION
  Report Type: Report from Study
  Country: RO (occurrence: RO)
  Receive Date: 20220613
  Receipt Date: 20220613
  Transmission Date: 20220720
  Serious: Yes (Death, Hospitalization, Other)
  Sender: FDA-Public Use
  Company Number: RO-ViiV Healthcare Limited-RO2022GSK081556

PATIENT

DRUGS (3)
  1. LAMIVUDINE [Suspect]
     Active Substance: LAMIVUDINE
     Indication: HIV infection CDC category C
     Dosage: 300 MILLIGRAM, ONCE A DAY (150 MG, TWO TIMES A DAY)
     Route: 065
  2. KALETRA [Suspect]
     Active Substance: LOPINAVIR\RITONAVIR
     Indication: HIV infection CDC category C
     Dosage: 4 DOSAGE FORM, ONCE A DAY
     Route: 048
  3. ZIDOVUDINE [Suspect]
     Active Substance: ZIDOVUDINE
     Indication: HIV infection CDC category C
     Dosage: 600 MILLIGRAM, ONCE A DAY (300 MG, TWO TIMES A DAY)
     Route: 065

REACTIONS (9)
  - Acute respiratory distress syndrome [Fatal]
  - Bacterial sepsis [Fatal]
  - Meningitis cryptococcal [Unknown]
  - Nausea [Unknown]
  - Fatigue [Unknown]
  - Vomiting [Unknown]
  - Treatment noncompliance [Unknown]
  - Visual impairment [Unknown]
  - Pyrexia [Unknown]
